FAERS Safety Report 22680444 (Version 4)
Quarter: 2024Q1

REPORT INFORMATION
  Report Type: Report from Study
  Country: US (occurrence: US)
  Receive Date: 20230707
  Receipt Date: 20240318
  Transmission Date: 20240410
  Serious: No
  Sender: FDA-Public Use
  Company Number: US-ACADIA PHARMACEUTICALS INC.-ACA-2023-TRF-002369

PATIENT
  Sex: Female

DRUGS (4)
  1. DAYBUE [Suspect]
     Active Substance: TROFINETIDE
     Indication: Rett syndrome
     Dosage: 25 MILLILITER, BID
     Route: 048
     Dates: start: 20230525
  2. DAYBUE [Suspect]
     Active Substance: TROFINETIDE
     Dosage: UNK
     Route: 065
     Dates: start: 202309
  3. DAYBUE [Suspect]
     Active Substance: TROFINETIDE
     Dosage: 25 MILLILITER, BID
     Route: 048
  4. DAYBUE [Suspect]
     Active Substance: TROFINETIDE
     Dosage: 25 MILLILITER, BID
     Route: 048
     Dates: start: 20240222

REACTIONS (10)
  - Influenza [Recovered/Resolved]
  - Retching [Not Recovered/Not Resolved]
  - Product use complaint [Unknown]
  - Refusal of treatment by patient [Unknown]
  - Refusal of treatment by patient [Unknown]
  - Upper respiratory tract infection [Recovering/Resolving]
  - Product dose omission issue [Not Recovered/Not Resolved]
  - Vomiting [Recovered/Resolved]
  - Nasopharyngitis [Not Recovered/Not Resolved]
  - Vomiting [Not Recovered/Not Resolved]
